FAERS Safety Report 19927809 (Version 1)
Quarter: 2021Q4

REPORT INFORMATION
  Report Type: Report from Study
  Country: US (occurrence: US)
  Receive Date: 20211007
  Receipt Date: 20211007
  Transmission Date: 20220303
  Serious: Yes (Other)
  Sender: FDA-Public Use
  Company Number: US-BRISTOL-MYERS SQUIBB COMPANY-BMS-2021-101183

PATIENT
  Age: 79 Year
  Sex: Male
  Weight: 108.86 kg

DRUGS (3)
  1. APIXABAN [Suspect]
     Active Substance: APIXABAN
     Indication: Cerebrovascular accident prophylaxis
     Dosage: 5 MILLIGRAM, BID
     Route: 048
     Dates: start: 2016
  2. SOTALOL [Concomitant]
     Active Substance: SOTALOL
     Indication: Product used for unknown indication
     Dosage: UNK
     Route: 065
     Dates: end: 2021
  3. COVID-19 VACCINE [Concomitant]
     Indication: Immunisation
     Dosage: UNK
     Route: 065
     Dates: start: 202104

REACTIONS (3)
  - Atrial fibrillation [Unknown]
  - Visual impairment [Unknown]
  - Weight increased [Unknown]
